FAERS Safety Report 16388914 (Version 1)
Quarter: 2019Q2

REPORT INFORMATION
  Report Type: Report from Study
  Country: TR (occurrence: TR)
  Receive Date: 20190604
  Receipt Date: 20190604
  Transmission Date: 20190711
  Serious: Yes (Other)
  Sender: FDA-Public Use
  Company Number: TR-JNJFOC-20190540886

PATIENT
  Age: 51 Year
  Sex: Female

DRUGS (2)
  1. SALAZOPYRIN [Concomitant]
     Active Substance: SULFASALAZINE
     Route: 065
  2. SIMPONI [Suspect]
     Active Substance: GOLIMUMAB
     Indication: RHEUMATOID ARTHRITIS
     Route: 058
     Dates: start: 20190212, end: 201903

REACTIONS (2)
  - Limb prosthesis user [Recovered/Resolved]
  - Device related infection [Unknown]

NARRATIVE: CASE EVENT DATE: 2019
